FAERS Safety Report 20131447 (Version 1)
Quarter: 2021Q4

REPORT INFORMATION
  Report Type: Spontaneous
  Country: AT (occurrence: AT)
  Receive Date: 20211130
  Receipt Date: 20211130
  Transmission Date: 20220303
  Serious: Yes (Other)
  Sender: FDA-Public Use
  Company Number: AT-DSJP-DSE-2021-138932

PATIENT
  Age: 46 Year
  Sex: Female

DRUGS (2)
  1. EDOXABAN TOSYLATE [Suspect]
     Active Substance: EDOXABAN TOSYLATE
     Indication: Atrial fibrillation
     Dosage: UNK
     Dates: start: 2019
  2. NEBIVOLOL [Suspect]
     Active Substance: NEBIVOLOL
     Indication: Atrial fibrillation
     Dosage: UNK
     Dates: start: 2019

REACTIONS (4)
  - Pulmonary hypertension [Unknown]
  - Respiratory failure [Unknown]
  - Cardiac failure [Unknown]
  - Abdominal pain [Unknown]

NARRATIVE: CASE EVENT DATE: 20210501
